FAERS Safety Report 19391628 (Version 1)
Quarter: 2021Q2

REPORT INFORMATION
  Report Type: Spontaneous
  Country: GB (occurrence: GB)
  Receive Date: 20210609
  Receipt Date: 20210609
  Transmission Date: 20210717
  Serious: Yes (Death, Hospitalization)
  Sender: FDA-Public Use
  Company Number: GB-TEVA-2021-GB-1919908

PATIENT
  Age: 30 Day
  Sex: Female

DRUGS (8)
  1. HEPARIN [Concomitant]
     Active Substance: HEPARIN SODIUM
     Indication: VENA CAVA THROMBOSIS
     Route: 065
  2. OCTREOTIDE. [Suspect]
     Active Substance: OCTREOTIDE
     Route: 042
  3. SILDENAFIL. [Concomitant]
     Active Substance: SILDENAFIL
     Indication: HYPOXIA
     Route: 042
  4. OCTREOTIDE. [Suspect]
     Active Substance: OCTREOTIDE
     Indication: CHYLOTHORAX
     Dosage: INITIAL DOSE NOT STATED
     Route: 042
  5. OCTREOTIDE. [Suspect]
     Active Substance: OCTREOTIDE
     Route: 042
  6. NORMAL SALINE [Concomitant]
     Active Substance: SODIUM CHLORIDE
     Indication: DEHYDRATION
     Route: 065
  7. ALBUMIN [Concomitant]
     Active Substance: ALBUMIN HUMAN
     Indication: DEHYDRATION
     Route: 065
  8. NITRIC OXIDE. [Concomitant]
     Active Substance: NITRIC OXIDE
     Indication: HYPOXIA
     Route: 055

REACTIONS (2)
  - Thrombocytopenia [Unknown]
  - Septic shock [Fatal]
